FAERS Safety Report 9999551 (Version 1)
Quarter: 2014Q1

REPORT INFORMATION
  Report Type: Spontaneous
  Country: TW (occurrence: TW)
  Receive Date: 20140312
  Receipt Date: 20140312
  Transmission Date: 20141002
  Serious: Yes (Life-Threatening, Hospitalization, Other)
  Sender: FDA-Public Use
  Company Number: TW-ROXANE LABORATORIES, INC.-2014-RO-00363RO

PATIENT
  Age: 61 Year
  Sex: Female

DRUGS (1)
  1. METHOTREXATE [Suspect]
     Indication: ECZEMA
     Route: 065

REACTIONS (3)
  - Bone marrow failure [Recovered/Resolved]
  - Stomatitis [Recovered/Resolved]
  - Staphylococcal sepsis [Recovered/Resolved]
